FAERS Safety Report 17219908 (Version 2)
Quarter: 2021Q3

REPORT INFORMATION
  Report Type: Spontaneous
  Country: US (occurrence: US)
  Receive Date: 20191231
  Receipt Date: 20210908
  Transmission Date: 20211014
  Serious: No
  Sender: FDA-Public Use
  Company Number: US-SA-2019SA119728

PATIENT
  Age: 54 Year
  Sex: Female

DRUGS (2)
  1. DUPIXENT [Suspect]
     Active Substance: DUPILUMAB
     Dosage: 300 MG (FREQUENCY: OTHER)
     Route: 058
     Dates: start: 20180919
  2. DUPIXENT [Suspect]
     Active Substance: DUPILUMAB
     Indication: DERMATITIS ATOPIC
     Dosage: 300 MG (FREQUENCY: OTHER, ROUTE: OCCLUSIVE DRESSING TECHNIQUE)
     Dates: start: 20180112, end: 2018

REACTIONS (5)
  - Eye irritation [Recovered/Resolved]
  - Periorbital swelling [Recovered/Resolved]
  - Ocular hyperaemia [Recovered/Resolved]
  - Lacrimation increased [Recovered/Resolved]
  - Osteoporosis [Unknown]

NARRATIVE: CASE EVENT DATE: 20191204
